FAERS Safety Report 5182288-5 (Version None)
Quarter: 2006Q4

REPORT INFORMATION
  Report Type: 
  Country: None (occurrence: None)
  Receive Date: 20061220
  Receipt Date: 20060711
  Transmission Date: 20070319
  Serious: No
  Sender: FDA-Public Use
  Company Number: US-GLAXOSMITHKLINE-A0611728A

PATIENT
  Age: 58 Year
  Sex: Male

DRUGS (2)
  1. COMMIT [Suspect]
     Dates: start: 20060615, end: 20060707
  2. LEVOTHROID [Concomitant]

REACTIONS (3)
  - FATIGUE [None]
  - MENTAL IMPAIRMENT [None]
  - NASAL DISCOMFORT [None]
